FAERS Safety Report 11929048 (Version 3)
Quarter: 2016Q1

REPORT INFORMATION
  Report Type: Spontaneous
  Country: JP (occurrence: JP)
  Receive Date: 20160120
  Receipt Date: 20160302
  Transmission Date: 20160526
  Serious: Yes (Hospitalization)
  Sender: FDA-Public Use
  Company Number: JP-TAKEDA-2015TJP024697AA

PATIENT
  Age: 29 Year
  Sex: Male

DRUGS (3)
  1. TAKELDA COMBINATION TABLETS [Suspect]
     Active Substance: ASPIRIN\LANSOPRAZOLE
     Indication: GASTRIC ULCER
     Dosage: 1 DF, QD
     Route: 048
     Dates: start: 20151208, end: 20151211
  2. ADONA                              /00056903/ [Concomitant]
     Active Substance: CARBAZOCHROME SODIUM SULFONATE
     Indication: EPISTAXIS
     Dosage: 1 DF, UNK
     Route: 048
     Dates: start: 20151208, end: 20151213
  3. AIMIX [Concomitant]
     Active Substance: AMLODIPINE BESYLATE\IRBESARTAN
     Dosage: UNK
     Route: 048

REACTIONS (3)
  - Drug prescribing error [Unknown]
  - Epistaxis [Recovering/Resolving]
  - Condition aggravated [Recovering/Resolving]

NARRATIVE: CASE EVENT DATE: 20151208
